FAERS Safety Report 16978387 (Version 1)
Quarter: 2019Q4

REPORT INFORMATION
  Report Type: Spontaneous
  Country: US (occurrence: US)
  Receive Date: 20191031
  Receipt Date: 20191031
  Transmission Date: 20200122
  Serious: No
  Sender: FDA-Public Use
  Company Number: US-BRISTOL-MYERS SQUIBB COMPANY-BMS-2019-104699

PATIENT
  Age: 55 Year
  Sex: Female
  Weight: 79.38 kg

DRUGS (5)
  1. HTZ [Concomitant]
     Indication: BLOOD PRESSURE MEASUREMENT
     Dosage: 25 MILLIGRAM, QD
     Route: 065
  2. VIT D [Concomitant]
     Active Substance: VITAMIN D NOS
     Indication: PRODUCT USED FOR UNKNOWN INDICATION
     Route: 065
  3. ORENCIA [Suspect]
     Active Substance: ABATACEPT
     Indication: RHEUMATOID ARTHRITIS
     Dosage: 125 MILLIGRAM, QWK
     Route: 050
     Dates: start: 201702
  4. PLAQUENIL [HYDROXYCHLOROQUINE PHOSPHATE] [Concomitant]
     Active Substance: HYDROXYCHLOROQUINE DIPHOSPHATE
     Indication: PRODUCT USED FOR UNKNOWN INDICATION
     Dosage: 400 MILLIGRAM, QD
     Route: 065
  5. SYNTHROID [Concomitant]
     Active Substance: LEVOTHYROXINE SODIUM
     Indication: PRODUCT USED FOR UNKNOWN INDICATION
     Dosage: 100 MCG AND 112 MCG ON ALTERNATING DAYS FOR AVERAGE OF 106 MCG
     Route: 065

REACTIONS (6)
  - Blood oestrogen increased [Recovered/Resolved]
  - Cortisol decreased [Recovered/Resolved]
  - Blood prolactin increased [Recovered/Resolved]
  - Insulin-like growth factor increased [Not Recovered/Not Resolved]
  - Breast discharge [Unknown]
  - Body height decreased [Unknown]

NARRATIVE: CASE EVENT DATE: 201812
